FAERS Safety Report 24749705 (Version 2)
Quarter: 2024Q4

REPORT INFORMATION
  Report Type: Spontaneous
  Country: BE (occurrence: BE)
  Receive Date: 20241218
  Receipt Date: 20241231
  Transmission Date: 20250114
  Serious: Yes (Other)
  Sender: PFIZER
  Company Number: BE-PFIZER INC-202400328637

PATIENT
  Age: 23 Year
  Sex: Male

DRUGS (2)
  1. RAPAMUNE [Suspect]
     Active Substance: SIROLIMUS
     Indication: Splenomegaly
     Dosage: UNK
     Dates: start: 202411, end: 202412
  2. RAPAMUNE [Suspect]
     Active Substance: SIROLIMUS
     Indication: Lymphadenopathy

REACTIONS (2)
  - Haemolysis [Unknown]
  - Off label use [Unknown]

NARRATIVE: CASE EVENT DATE: 20241101
